FAERS Safety Report 4507240-1 (Version None)
Quarter: 2004Q4

REPORT INFORMATION
  Report Type: 
  Country: None (occurrence: None)
  Receive Date: 20041025
  Receipt Date: 20040528
  Transmission Date: 20050328
  Serious: Yes (Other)
  Sender: FDA-Public Use
  Company Number: US-JNJFOC-20040600174

PATIENT
  Age: 37 Year

DRUGS (1)
  1. REMICADE [Suspect]
     Indication: CROHN'S DISEASE
     Dosage: INTRVANEOUS
     Route: 042
     Dates: start: 20040101

REACTIONS (3)
  - CONDITION AGGRAVATED [None]
  - CROHN'S DISEASE [None]
  - DYSPNOEA [None]
